FAERS Safety Report 8990939 (Version 4)
Quarter: 2013Q2

REPORT INFORMATION
  Report Type: Spontaneous
  Country: JP (occurrence: JP)
  Receive Date: 20121231
  Receipt Date: 20130415
  Transmission Date: 20140414
  Serious: Yes (Death, Life-Threatening, Hospitalization, Other)
  Sender: FDA-Public Use
  Company Number: JP-AMGEN-JPNSP2012083386

PATIENT
  Age: 77 Year
  Sex: Male
  Weight: 85 kg

DRUGS (5)
  1. VECTIBIX [Suspect]
     Indication: HEPATIC CANCER METASTATIC
     Dosage: 512 MG, Q3WK
     Route: 041
     Dates: start: 20121115, end: 20121204
  2. CAMPTO [Concomitant]
     Indication: HEPATIC CANCER METASTATIC
     Dosage: 290 MG, Q3WK
     Route: 041
     Dates: start: 20121115, end: 20121204
  3. 5-FU /00098801/ [Concomitant]
     Indication: HEPATIC CANCER METASTATIC
     Dosage: 780 MG, Q3WK
     Route: 040
     Dates: start: 20121115, end: 20121204
  4. 5-FU /00098801/ [Concomitant]
     Dosage: 4600 MG, Q3WK
     Route: 041
     Dates: start: 20121115, end: 20121204
  5. ISOVORIN                           /00566702/ [Concomitant]
     Indication: HEPATIC CANCER METASTATIC
     Dosage: 390 MG, Q3WK
     Route: 041
     Dates: start: 20121115, end: 20121204

REACTIONS (5)
  - Interstitial lung disease [Recovering/Resolving]
  - Bone marrow failure [Recovered/Resolved]
  - Rectal cancer [Fatal]
  - Fall [Recovered/Resolved]
  - Femoral neck fracture [Unknown]
